FAERS Safety Report 17256946 (Version 1)
Quarter: 2019Q4

REPORT INFORMATION
  Report Type: Spontaneous
  Country: US (occurrence: US)
  Receive Date: 20191217
  Receipt Date: 20191217
  Transmission Date: 20200122
  Serious: No
  Sender: FDA-Public Use
  Company Number: None

PATIENT
  Age: 63 Year
  Sex: Female
  Weight: 106.59 kg

DRUGS (1)
  1. FEBUXOSTAT 40MG [Suspect]
     Active Substance: FEBUXOSTAT
     Indication: GOUT
     Route: 048
     Dates: start: 20190925

REACTIONS (1)
  - Stomatitis [None]

NARRATIVE: CASE EVENT DATE: 20191107
